FAERS Safety Report 7293271-8 (Version None)
Quarter: 2011Q1

REPORT INFORMATION
  Report Type: 
  Country: None (occurrence: None)
  Receive Date: 20110210
  Receipt Date: 20110210
  Transmission Date: 20110831
  Serious: Yes (Hospitalization)
  Sender: FDA-Public Use
  Company Number: None

PATIENT
  Age: 50 Year
  Sex: Female
  Weight: 56 kg

DRUGS (2)
  1. AVASTIN [Suspect]
     Indication: BREAST CANCER
     Dosage: 905 EVERY 3 WEEKS IV
     Route: 042
     Dates: start: 20100812, end: 20110113
  2. AVASTIN [Suspect]

REACTIONS (1)
  - PNEUMONIA [None]
